FAERS Safety Report 10039695 (Version 1)
Quarter: 2014Q1

REPORT INFORMATION
  Report Type: Spontaneous
  Country: US (occurrence: US)
  Receive Date: 20140326
  Receipt Date: 20140326
  Transmission Date: 20141002
  Serious: No
  Sender: FDA-Public Use
  Company Number: US-009507513-1403USA011566

PATIENT
  Sex: 0

DRUGS (1)
  1. PROVENTIL [Suspect]
     Dosage: 90 MCG/ 2 PUFFS, EVERY 4-6 HOURS
     Route: 055
     Dates: start: 20140322

REACTIONS (2)
  - Drug dose omission [Unknown]
  - Product quality issue [Unknown]
